FAERS Safety Report 7962015-6 (Version None)
Quarter: 2011Q4

REPORT INFORMATION
  Report Type: 
  Country: None (occurrence: None)
  Receive Date: 20111205
  Receipt Date: 20111205
  Transmission Date: 20120403
  Serious: No
  Sender: FDA-Public Use
  Company Number: None

PATIENT
  Age: 51 Year
  Sex: Male
  Weight: 140.5 kg

DRUGS (2)
  1. DOFETILIDE [Suspect]
     Dosage: 500 MCG ONCE PO
     Route: 048
     Dates: start: 20111101, end: 20111101
  2. AMIODARONE HCL [Suspect]
     Dosage: 200 MG EVERY DAY PO
     Route: 048
     Dates: start: 20110824, end: 20110825

REACTIONS (2)
  - ELECTROCARDIOGRAM QT PROLONGED [None]
  - RASH [None]
